FAERS Safety Report 22050804 (Version 1)
Quarter: 2023Q1

REPORT INFORMATION
  Report Type: 
  Country: US (occurrence: US)
  Receive Date: 20230301
  Receipt Date: 20230301
  Transmission Date: 20230418
  Serious: Yes (Life-Threatening, Hospitalization)
  Sender: FDA-Public Use
  Company Number: US-C B Fleet Co Inc-202302-US-000493

PATIENT
  Age: 75 Year
  Sex: Female

DRUGS (2)
  1. BC (ASPIRIN\CAFFEINE) [Suspect]
     Active Substance: ASPIRIN\CAFFEINE
     Indication: Abdominal pain upper
     Dosage: 1 BC PACKET LASTS ABOUT A DAY AND A HALF
     Route: 048
  2. BC (ASPIRIN\CAFFEINE) [Suspect]
     Active Substance: ASPIRIN\CAFFEINE
     Indication: Pain in extremity

REACTIONS (3)
  - Myocardial infarction [Recovered/Resolved]
  - Cerebrovascular accident [Recovered/Resolved]
  - Product contamination [None]
